FAERS Safety Report 7278101-2 (Version None)
Quarter: 2011Q1

REPORT INFORMATION
  Report Type: 
  Country: None (occurrence: None)
  Receive Date: 20110207
  Receipt Date: 20110131
  Transmission Date: 20110831
  Serious: Yes (Hospitalization)
  Sender: FDA-Public Use
  Company Number: B0693254A

PATIENT
  Sex: Female

DRUGS (1)
  1. NICABATE CQ 2MG LOZENGE [Suspect]
     Indication: EX-TOBACCO USER
     Route: 002
     Dates: start: 20070101

REACTIONS (6)
  - HAEMORRHAGE [None]
  - HYPOTENSION [None]
  - ABORTION SPONTANEOUS [None]
  - DRUG EXPOSURE DURING PREGNANCY [None]
  - SYNCOPE [None]
  - INTENTIONAL DRUG MISUSE [None]
